FAERS Safety Report 5889066-X (Version None)
Quarter: 2008Q3

REPORT INFORMATION
  Report Type: 
  Country: None (occurrence: None)
  Receive Date: 20080919
  Receipt Date: 20080303
  Transmission Date: 20090109
  Serious: No
  Sender: FDA-Public Use
  Company Number: US-KINGPHARMUSA00001-K200800275

PATIENT

DRUGS (4)
  1. SONATA [Suspect]
     Indication: INSOMNIA
     Dosage: 30 MG, (10 MG, 3 CAPSULES) PRN
     Route: 048
     Dates: start: 20070101
  2. SINGULAIR [Concomitant]
     Indication: ASTHMA
     Dosage: 10 MG, QD
  3. ADVAIR DISKUS 100/50 [Concomitant]
     Indication: ASTHMA
     Dosage: 250/500, BID
     Route: 045
  4. BENICAR [Concomitant]
     Indication: BLOOD PRESSURE
     Dosage: 10 MG, QD
     Dates: start: 20030101

REACTIONS (1)
  - DRUG INEFFECTIVE [None]
